FAERS Safety Report 23090992 (Version 1)
Quarter: 2023Q4

REPORT INFORMATION
  Report Type: Spontaneous
  Country: US (occurrence: US)
  Receive Date: 20231020
  Receipt Date: 20231020
  Transmission Date: 20240109
  Serious: Yes (Life-Threatening, Hospitalization, Other)
  Sender: FDA-Public Use
  Company Number: US-BAXTER-2023BAX033329

PATIENT
  Age: 75 Year
  Sex: Male
  Weight: 73 kg

DRUGS (4)
  1. BUPIVACAINE [Suspect]
     Active Substance: BUPIVACAINE
     Indication: Spinal anaesthesia
     Dosage: 300 MG (40 ML OF A 0.75% SOLUTION) DILUTED IN 100 ML 0.9% SODIUM CHLORIDE TO A TOTAL VOLUME OF 143 M
     Route: 052
  2. KETOROLAC [Suspect]
     Active Substance: KETOROLAC TROMETHAMINE
     Indication: Spinal anaesthesia
     Dosage: 60MG, KNEE INJECTION
     Route: 052
  3. SODIUM CHLORIDE [Suspect]
     Active Substance: SODIUM CHLORIDE
     Indication: Medication dilution
     Dosage: 0.9% TO TOTAL VOLUME OF 143 ML, KNEE INJECTION
     Route: 052
  4. MORPHINE [Concomitant]
     Active Substance: MORPHINE
     Indication: Spinal anaesthesia
     Dosage: 4MG, KNEE INJECTION
     Route: 052

REACTIONS (5)
  - Toxicity to various agents [Unknown]
  - Hypotension [Recovering/Resolving]
  - Bradycardia [Recovered/Resolved]
  - Somnolence [Recovering/Resolving]
  - Hyperhidrosis [Recovering/Resolving]
